FAERS Safety Report 4319159-X (Version None)
Quarter: 2004Q1

REPORT INFORMATION
  Report Type: 
  Country: None (occurrence: None)
  Receive Date: 20040316
  Receipt Date: 20040227
  Transmission Date: 20041129
  Serious: Yes (Hospitalization)
  Sender: FDA-Public Use
  Company Number: FR_040203600

PATIENT
  Age: 71 Year
  Sex: Female
  Weight: 45 kg

DRUGS (9)
  1. XIGRIS [Suspect]
     Indication: RENAL FAILURE
     Dosage: 24 UG/KG/HR
     Dates: start: 20040209, end: 20040213
  2. XIGRIS [Suspect]
     Indication: SEPTIC SHOCK
     Dosage: 24 UG/KG/HR
     Dates: start: 20040209, end: 20040213
  3. HEPARIN [Concomitant]
  4. LOVENOX [Concomitant]
  5. TARGOCID [Concomitant]
  6. TAVANIC (LEVOFLOXACIN) [Concomitant]
  7. OMEPRAZOLE [Concomitant]
  8. PARENTERAL [Concomitant]
  9. DOPAMINE HCL [Concomitant]

REACTIONS (3)
  - CONDITION AGGRAVATED [None]
  - HEPATIC FAILURE [None]
  - THROMBOCYTOPENIA [None]
